FAERS Safety Report 7248163-7 (Version None)
Quarter: 2011Q1

REPORT INFORMATION
  Report Type: 
  Country: None (occurrence: None)
  Receive Date: 20110127
  Receipt Date: 20101206
  Transmission Date: 20110831
  Serious: Yes (Hospitalization)
  Sender: FDA-Public Use
  Company Number: US-BAYER-201010386NA

PATIENT
  Sex: Female
  Weight: 105 kg

DRUGS (11)
  1. PHENTERMINE [Concomitant]
     Dosage: 37.5 MG ORAL
     Dates: start: 20061214, end: 20080117
  2. UNKNOWN DRUG [Concomitant]
  3. TESSALON [Concomitant]
     Dosage: 200 MG ORAL
     Dates: start: 20080204
  4. XANAX [Concomitant]
  5. IBUPROFEN [Concomitant]
     Dosage: 200 MG, UNK
     Route: 048
  6. AMOXIL [Concomitant]
     Dosage: 500 MG ORAL
     Dates: start: 20080204
  7. YAZ [Suspect]
     Indication: CONTRACEPTION
     Route: 048
     Dates: start: 20060501, end: 20090815
  8. CELESTONE SOLUSPAN [Concomitant]
     Indication: TRACHEOBRONCHITIS
     Dosage: 6 MG, UNK
     Dates: start: 20080204
  9. YASMIN [Suspect]
     Indication: CONTRACEPTION
     Route: 048
     Dates: start: 20050101, end: 20060515
  10. UNKNOWN DRUG [Concomitant]
  11. MERIDIA [Concomitant]
     Dosage: 10 MG ORAL
     Dates: start: 20080204

REACTIONS (9)
  - NAUSEA [None]
  - BILIARY COLIC [None]
  - GALLBLADDER CHOLESTEROLOSIS [None]
  - CHOLECYSTITIS CHRONIC [None]
  - ABDOMINAL DISTENSION [None]
  - MURPHY'S SIGN POSITIVE [None]
  - DYSPEPSIA [None]
  - ABDOMINAL PAIN UPPER [None]
  - VOMITING [None]
